FAERS Safety Report 5325454-8 (Version None)
Quarter: 2007Q2

REPORT INFORMATION
  Report Type: 
  Country: None (occurrence: None)
  Receive Date: 20070509
  Receipt Date: 20070427
  Transmission Date: 20071010
  Serious: Yes (Other)
  Sender: FDA-Public Use
  Company Number: 2007BI009130

PATIENT
  Age: 59 Year
  Sex: Female
  Weight: 79.8331 kg

DRUGS (4)
  1. AVONEX [Suspect]
     Indication: MULTIPLE SCLEROSIS
     Dosage: 30 UG;QW; IM
     Route: 030
     Dates: start: 19980101, end: 20030101
  2. AVONEX [Suspect]
     Indication: MULTIPLE SCLEROSIS
     Dosage: 30 UG;QW; IM
     Dates: start: 20030101, end: 20060101
  3. AVONEX [Suspect]
     Indication: MULTIPLE SCLEROSIS
     Dosage: 30 UG;QW; IM
     Route: 030
     Dates: start: 20070201
  4. PAIN MEDICATION [Concomitant]

REACTIONS (5)
  - EYE OPERATION [None]
  - HEPATITIS C [None]
  - INFLUENZA LIKE ILLNESS [None]
  - SPLENIC NEOPLASM MALIGNANCY UNSPECIFIED [None]
  - SYSTEMIC LUPUS ERYTHEMATOSUS [None]
